FAERS Safety Report 8579025-0 (Version None)
Quarter: 2012Q3

REPORT INFORMATION
  Report Type: 
  Country: None (occurrence: None)
  Receive Date: 20120808
  Receipt Date: 20120801
  Transmission Date: 20120928
  Serious: Yes (Hospitalization, Other)
  Sender: FDA-Public Use
  Company Number: US-ROCHE-1057678

PATIENT
  Sex: Female
  Weight: 70.37 kg

DRUGS (1)
  1. XELODA [Suspect]
     Indication: BREAST CANCER METASTATIC
     Route: 048
     Dates: start: 20120319

REACTIONS (15)
  - SYSTEMIC LUPUS ERYTHEMATOSUS [None]
  - EYE IRRITATION [None]
  - PAIN IN EXTREMITY [None]
  - DARK CIRCLES UNDER EYES [None]
  - DIARRHOEA [None]
  - SURGERY [None]
  - FATIGUE [None]
  - JOINT SWELLING [None]
  - SKIN DISCOLOURATION [None]
  - ORAL DISCOMFORT [None]
  - LIP BLISTER [None]
  - SKIN EXFOLIATION [None]
  - ARTHROPATHY [None]
  - UNEVALUABLE EVENT [None]
  - PARAESTHESIA [None]
